FAERS Safety Report 5932345-8 (Version None)
Quarter: 2008Q4

REPORT INFORMATION
  Report Type: 
  Country: None (occurrence: None)
  Receive Date: 20081028
  Receipt Date: 20081023
  Transmission Date: 20090506
  Serious: Yes (Death)
  Sender: FDA-Public Use
  Company Number: NL-ABBOTT-08P-114-0482715-00

PATIENT
  Sex: Female
  Weight: 60 kg

DRUGS (2)
  1. HUMIRA [Suspect]
     Indication: CROHN'S DISEASE
     Dosage: UP-LOAD DOSE
     Route: 058
     Dates: start: 20080828
  2. HUMIRA [Suspect]
     Route: 058
     Dates: start: 20080926, end: 20081011

REACTIONS (1)
  - CEREBRAL HAEMORRHAGE [None]
